FAERS Safety Report 9996510 (Version 3)
Quarter: 2014Q1

REPORT INFORMATION
  Report Type: Spontaneous
  Country: CN (occurrence: CN)
  Receive Date: 20140311
  Receipt Date: 20140328
  Transmission Date: 20141002
  Serious: Yes (Death)
  Sender: FDA-Public Use
  Company Number: CN-BAYER-2014-033503

PATIENT
  Age: 72 Year
  Sex: Male

DRUGS (2)
  1. NEXAVAR [Suspect]
     Indication: RENAL CELL CARCINOMA
     Dosage: 400 MG, BID
     Route: 048
     Dates: start: 20110701
  2. NEXAVAR [Suspect]
     Indication: HEPATIC CANCER

REACTIONS (4)
  - Multi-organ failure [Fatal]
  - Palmar-plantar erythrodysaesthesia syndrome [None]
  - Decreased appetite [None]
  - Diarrhoea [None]
